FAERS Safety Report 4644213-2 (Version None)
Quarter: 2005Q2

REPORT INFORMATION
  Report Type: 
  Country: None (occurrence: None)
  Receive Date: 20050331
  Receipt Date: 20050105
  Transmission Date: 20051028
  Serious: No
  Sender: FDA-Public Use
  Company Number: 05P-163-0285644-00

PATIENT
  Age: 60 Year
  Sex: Female
  Weight: 78.0187 kg

DRUGS (7)
  1. HUMIRA [Suspect]
     Indication: RHEUMATOID ARTHRITIS
     Dosage: 40 MG, 1 IN 2 WK, SUBCUTANEOUS
     Route: 058
     Dates: start: 20041208
  2. PREDNISONE [Concomitant]
  3. KETOPROFEN [Concomitant]
  4. LEFLUNOMIDE [Concomitant]
  5. GLIPIZIDE [Concomitant]
  6. ATORVASTATIN CALCIUM [Concomitant]
  7. LISINOPRIL [Concomitant]

REACTIONS (2)
  - COUGH [None]
  - SINUSITIS [None]
